FAERS Safety Report 19224350 (Version 1)
Quarter: 2021Q2

REPORT INFORMATION
  Report Type: Report from Study
  Country: US (occurrence: US)
  Receive Date: 20210505
  Receipt Date: 20210505
  Transmission Date: 20210717
  Serious: Yes (Other)
  Sender: FDA-Public Use
  Company Number: US-HORIZON THERAPEUTICS-HZN-2021-002058

PATIENT

DRUGS (1)
  1. ACTIMMUNE [Suspect]
     Active Substance: INTERFERON GAMMA-1B
     Indication: CHRONIC GRANULOMATOUS DISEASE
     Dosage: 3 TIMES PER WEEK, DOSE VARIED ,INJECTION
     Route: 065
     Dates: start: 1988, end: 1998

REACTIONS (3)
  - Pneumonia [Unknown]
  - Pyrexia [Unknown]
  - Drug ineffective [Unknown]
